FAERS Safety Report 8173530-7 (Version None)
Quarter: 2012Q1

REPORT INFORMATION
  Report Type: 
  Country: None (occurrence: None)
  Receive Date: 20120229
  Receipt Date: 20120221
  Transmission Date: 20120608
  Serious: Yes (Other)
  Sender: FDA-Public Use
  Company Number: ES-B.I. PHARMACEUTICALS,INC./RIDGEFIELD-2012-EU-01047GD

PATIENT

DRUGS (3)
  1. EMTRICITABINE/TENOFOVIR DISOPROXIL FUMARATE [Suspect]
     Indication: HIV INFECTION
     Dosage: FIXED DOSE OF TENOFOVIR/EMTRICITABINE 245 MG/200 MG QD
     Route: 048
  2. NEVIRAPINE [Suspect]
     Indication: HIV INFECTION
     Dosage: 200 MG
     Route: 048
  3. NEVIRAPINE [Suspect]
     Dosage: 400 MG
     Route: 048

REACTIONS (1)
  - MENINGITIS CRYPTOCOCCAL [None]
